FAERS Safety Report 24714668 (Version 1)
Quarter: 2024Q4

REPORT INFORMATION
  Report Type: Report from Study
  Country: US (occurrence: US)
  Receive Date: 20241209
  Receipt Date: 20241209
  Transmission Date: 20250115
  Serious: Yes (Death, Hospitalization)
  Sender: ABBVIE
  Company Number: US-ABBVIE-6038022

PATIENT
  Age: 77 Year
  Sex: Male

DRUGS (3)
  1. VENCLEXTA [Suspect]
     Active Substance: VENETOCLAX
     Indication: Chronic myelomonocytic leukaemia
     Dosage: DAY 1 FORM STRENGTH: 100MG, LAST ADMIN DATE: 2024
     Route: 048
     Dates: start: 202404
  2. VENCLEXTA [Suspect]
     Active Substance: VENETOCLAX
     Indication: Chronic myelomonocytic leukaemia
     Dosage: DAY 2, FORM STRENGTH: 100MG?FIRST ADMINISTRATION  DATE APR 2024, LAST ADMIN DATE: 2024
     Route: 048
  3. VENCLEXTA [Suspect]
     Active Substance: VENETOCLAX
     Indication: Chronic myelomonocytic leukaemia
     Dosage: ON DAYS 3-14, FIRST ADMIN DATE: 2024, FORM STRENGTH: 100MG
     Route: 048
     Dates: end: 202406

REACTIONS (3)
  - Death [Fatal]
  - Off label use [Unknown]
  - Hospitalisation [Unknown]

NARRATIVE: CASE EVENT DATE: 20240101
